FAERS Safety Report 13918017 (Version 2)
Quarter: 2019Q4

REPORT INFORMATION
  Report Type: Report from Study
  Country: US (occurrence: US)
  Receive Date: 20170829
  Receipt Date: 20191105
  Transmission Date: 20200122
  Serious: No
  Sender: FDA-Public Use
  Company Number: US-SA-2016SA228401

PATIENT
  Age: 33 Year
  Sex: Male

DRUGS (2)
  1. AGALSIDASE BETA [Suspect]
     Active Substance: AGALSIDASE BETA
     Dosage: 80 Q2
     Route: 041
     Dates: start: 20110817
  2. AGALSIDASE BETA [Suspect]
     Active Substance: AGALSIDASE BETA
     Indication: FABRY^S DISEASE
     Dosage: 80 MG; QOW
     Route: 041
     Dates: start: 20110321

REACTIONS (6)
  - Pain [Unknown]
  - Fatigue [Unknown]
  - Pallor [Unknown]
  - Burning sensation [Unknown]
  - Foaming at mouth [Unknown]
  - Cardioversion [Unknown]
